FAERS Safety Report 8390850 (Version 2)
Quarter: 2012Q4

REPORT INFORMATION
  Report Type: 
  Country: US (occurrence: US)
  Receive Date: 20120206
  Receipt Date: 20120911
  Transmission Date: 20130627
  Serious: Yes (Death, Other)
  Sender: FDA-Public Use
  Company Number: US-PFIZER INC-2012027864

PATIENT
  Age: 44 Year
  Sex: Male

DRUGS (1)
  1. CHANTIX [Suspect]
     Indication: SMOKING CESSATION THERAPY
     Dosage: 0.5mg/ 1mg
     Dates: start: 201001, end: 201002

REACTIONS (6)
  - Completed suicide [Fatal]
  - Personality change [Unknown]
  - Irritability [Unknown]
  - Depression [Unknown]
  - Anxiety [Unknown]
  - Aggression [Unknown]
